FAERS Safety Report 7583098-1 (Version None)
Quarter: 2011Q2

REPORT INFORMATION
  Report Type: 
  Country: None (occurrence: None)
  Receive Date: 20110627
  Receipt Date: 20110627
  Transmission Date: 20111010
  Serious: Yes (Hospitalization)
  Sender: FDA-Public Use
  Company Number: None

PATIENT
  Sex: Female
  Weight: 77.2 kg

DRUGS (6)
  1. DOXORUBICIN HYDROCHLORIDE [Suspect]
     Dosage: 80 MG
  2. RITUXIMAB (MOAB C2B8 ANTI CD20 CHIMERIC) [Suspect]
     Dosage: 720 MG
  3. VINCRISTINE SULFATE [Suspect]
     Dosage: 2.8 MG
  4. ETOPOSIDE [Suspect]
     Dosage: 384 MG
  5. PREDNISONE [Suspect]
     Dosage: 50 MG
  6. CYCLOPHOSPHAMIDE [Suspect]
     Dosage: 2060 MG

REACTIONS (8)
  - ANAEMIA [None]
  - KLEBSIELLA TEST POSITIVE [None]
  - ORAL CANDIDIASIS [None]
  - MUCOSAL INFECTION [None]
  - URINARY TRACT INFECTION [None]
  - PLATELET COUNT ABNORMAL [None]
  - SEPSIS [None]
  - FEBRILE NEUTROPENIA [None]
